FAERS Safety Report 6620520-9 (Version None)
Quarter: 2010Q1

REPORT INFORMATION
  Report Type: 
  Country: None (occurrence: None)
  Receive Date: 20100309
  Receipt Date: 20100301
  Transmission Date: 20100710
  Serious: Yes (Other)
  Sender: FDA-Public Use
  Company Number: PT-BRISTOL-MYERS SQUIBB COMPANY-14980635

PATIENT
  Age: 3 Decade
  Sex: Male

DRUGS (3)
  1. REYATAZ [Suspect]
     Indication: HIV INFECTION
     Dosage: TAKING FOR ABOUT 3 YEARS
     Route: 048
     Dates: end: 20100101
  2. RITONAVIR [Suspect]
     Dosage: TAKING SINCE ABOUT 3 YEARS AGO
     Dates: end: 20100101
  3. EMTRICITABINE AND TENOFOVIR DISOPROXIL FUMARATE [Suspect]
     Dosage: TAKING SINCE ABOUT 3 YEARS AGO,EMTRICITAINE 200 MG + TENOFOVIR 245 MG

REACTIONS (3)
  - DYSLIPIDAEMIA [None]
  - HEPATIC LESION [None]
  - HYPERBILIRUBINAEMIA [None]
